FAERS Safety Report 9277187 (Version 1)
Quarter: 2013Q2

REPORT INFORMATION
  Report Type: Spontaneous
  Country: BR (occurrence: BR)
  Receive Date: 20130508
  Receipt Date: 20130508
  Transmission Date: 20140414
  Serious: Yes (Other)
  Sender: FDA-Public Use
  Company Number: BR-AMGEN-BRASP2007000143

PATIENT
  Age: 61 Year
  Sex: Male
  Weight: 87 kg

DRUGS (4)
  1. ENBREL [Suspect]
     Indication: RHEUMATOID ARTHRITIS
     Dosage: UNK
  2. ENBREL [Suspect]
     Dosage: 25 MG, 2X/WEEK
  3. ENBREL [Suspect]
     Dosage: 50 MG, QWK
     Route: 058
  4. ENBREL [Suspect]
     Dosage: 25 MG, 2 TIMES/WK

REACTIONS (7)
  - Cataract [Unknown]
  - Headache [Recovered/Resolved]
  - Pain [Recovered/Resolved]
  - Hypertension [Unknown]
  - Blood glucose abnormal [Unknown]
  - Injection site pain [Unknown]
  - Pruritus [Unknown]
